FAERS Safety Report 5372227-6 (Version None)
Quarter: 2007Q2

REPORT INFORMATION
  Report Type: 
  Country: None (occurrence: None)
  Receive Date: 20070627
  Receipt Date: 20070612
  Transmission Date: 20071010
  Serious: Yes (Other)
  Sender: FDA-Public Use
  Company Number: PHMT2007CA01421

PATIENT
  Age: 82 Year
  Sex: Male
  Weight: 71.655 kg

DRUGS (1)
  1. RECLAST [Suspect]
     Indication: OSTEITIS DEFORMANS
     Dosage: 50MG/100ML INTRAVENOUS THEN INTERSTITIAL
     Dates: start: 20070612, end: 20070612

REACTIONS (7)
  - CHEST PAIN [None]
  - CHILLS [None]
  - DRUG ADMINISTRATION ERROR [None]
  - HICCUPS [None]
  - INFUSION SITE REACTION [None]
  - PAIN IN EXTREMITY [None]
  - PYREXIA [None]
